FAERS Safety Report 21460996 (Version 1)
Quarter: 2022Q4

REPORT INFORMATION
  Report Type: Spontaneous
  Country: CA (occurrence: CA)
  Receive Date: 20221015
  Receipt Date: 20221015
  Transmission Date: 20230113
  Serious: Yes (Hospitalization, Other)
  Sender: FDA-Public Use
  Company Number: CA-STRIDES ARCOLAB LIMITED-2022SP013401

PATIENT
  Sex: Male

DRUGS (22)
  1. PROPRANOLOL [Suspect]
     Active Substance: PROPRANOLOL HYDROCHLORIDE
     Indication: Product used for unknown indication
     Dosage: 10 MILLIGRAM, TID, RECEIVED 3 TIMES DAILY
     Route: 065
  2. METFORMIN [Suspect]
     Active Substance: METFORMIN HYDROCHLORIDE
     Indication: Diabetes mellitus
     Dosage: 500 MILLIGRAM, BID
     Route: 065
  3. OLANZAPINE [Suspect]
     Active Substance: OLANZAPINE
     Indication: Antipsychotic therapy
     Dosage: UNK, UP TO 15MG AT BEDTIME
     Route: 065
     Dates: start: 2020
  4. ASENAPINE [Suspect]
     Active Substance: ASENAPINE
     Indication: Antipsychotic therapy
     Dosage: 5 MILLIGRAM PER DAY, AT BEDTIME
     Route: 060
     Dates: start: 2009
  5. CANAGLIFLOZIN [Suspect]
     Active Substance: CANAGLIFLOZIN
     Indication: Diabetes mellitus
     Dosage: 100 MILLIGRAM PER DAY, IN THE MORNING
     Route: 065
  6. CLONAZEPAM [Suspect]
     Active Substance: CLONAZEPAM
     Indication: Anxiety
     Dosage: 0.25 MILLIGRAM, BID
     Route: 065
  7. CLONAZEPAM [Suspect]
     Active Substance: CLONAZEPAM
     Dosage: 0.5 MILLIGRAM PER DAY, AT BEDTIME
     Route: 065
  8. CLONAZEPAM [Suspect]
     Active Substance: CLONAZEPAM
     Dosage: 0.25 MILLIGRAM PER TWO DAYS, PER COMMUNITY PHARMACY, TAKEN REGULARLY
     Route: 065
  9. LAMOTRIGINE [Suspect]
     Active Substance: LAMOTRIGINE
     Indication: Affective disorder
     Dosage: 300 MILLIGRAM PER DAY
     Route: 065
  10. LITHIUM [Suspect]
     Active Substance: LITHIUM
     Indication: Affective disorder
     Dosage: 450 MILLIGRAM, BID
     Route: 065
  11. PANTOPRAZOLE SODIUM [Suspect]
     Active Substance: PANTOPRAZOLE SODIUM
     Indication: Gastrooesophageal reflux disease
     Dosage: 40 MILLIGRAM PER DAY
     Route: 065
     Dates: start: 2009
  12. PANTOPRAZOLE SODIUM [Suspect]
     Active Substance: PANTOPRAZOLE SODIUM
     Dosage: UNK
     Route: 065
  13. PREGABALIN [Suspect]
     Active Substance: PREGABALIN
     Indication: Anxiety
     Dosage: 150 MILLIGRAM PER DAY
     Route: 065
  14. RISPERIDONE [Suspect]
     Active Substance: RISPERIDONE
     Indication: Antipsychotic therapy
     Dosage: 4 MILLIGRAM PER DAY
     Route: 065
     Dates: start: 2020
  15. VENLAFAXINE [Suspect]
     Active Substance: VENLAFAXINE HYDROCHLORIDE
     Indication: Anxiety
     Dosage: 112.5 MILLIGRAM PER DAY
     Route: 065
  16. VENLAFAXINE [Suspect]
     Active Substance: VENLAFAXINE HYDROCHLORIDE
     Indication: Depression
  17. ZOPICLONE [Suspect]
     Active Substance: ZOPICLONE
     Indication: Insomnia
     Dosage: 7.5 MILLIGRAM, AT BEDTIME AND DURING THE DAY IF REQUIRED
     Route: 065
  18. QUETIAPINE [Suspect]
     Active Substance: QUETIAPINE
     Indication: Sleep disorder
     Dosage: UNK, RECEIVED UP TO 75MG AT BEDTIME
     Route: 065
     Dates: start: 2020
  19. ASPIRIN [Suspect]
     Active Substance: ASPIRIN
     Indication: Myocardial infarction
     Dosage: 81 MILLIGRAM PER DAY, IN THE MORNING
     Route: 065
     Dates: start: 2010
  20. ATORVASTATIN [Suspect]
     Active Substance: ATORVASTATIN
     Indication: Myocardial infarction
     Dosage: 80 MILLIGRAM PER DAY
     Route: 065
     Dates: start: 2010
  21. NITROGLYCERIN [Suspect]
     Active Substance: NITROGLYCERIN
     Indication: Chest pain
     Dosage: 0.4 MILLIGRAM
     Route: 065
     Dates: start: 2010
  22. RAMIPRIL [Suspect]
     Active Substance: RAMIPRIL
     Indication: Myocardial infarction
     Dosage: 10 MILLIGRAM PER DAY
     Route: 065
     Dates: start: 2010

REACTIONS (7)
  - Product prescribing error [Unknown]
  - Psychotic disorder [Recovered/Resolved]
  - Depression [Recovered/Resolved]
  - Hallucination, visual [Recovered/Resolved]
  - Hallucination, auditory [Recovered/Resolved]
  - Diabetes mellitus [Unknown]
  - Hypoglycaemia [Unknown]
